APPROVED DRUG PRODUCT: CESAMET
Active Ingredient: NABILONE
Strength: 1MG
Dosage Form/Route: CAPSULE;ORAL
Application: N018677 | Product #001
Applicant: BAUSCH HEALTH US LLC
Approved: Dec 26, 1985 | RLD: Yes | RS: No | Type: DISCN